FAERS Safety Report 6232788-1 (Version None)
Quarter: 2009Q2

REPORT INFORMATION
  Report Type: 
  Country: None (occurrence: None)
  Receive Date: 20090612
  Receipt Date: 20090612
  Transmission Date: 20091009
  Serious: Yes (Hospitalization)
  Sender: FDA-Public Use
  Company Number: None

PATIENT
  Age: 23 Year
  Sex: Male
  Weight: 74 kg

DRUGS (13)
  1. RISPERDAL [Suspect]
     Indication: BIPOLAR DISORDER
     Dosage: 1.5 MG QHS PO
     Route: 048
     Dates: start: 20090319, end: 20090402
  2. RISPERDAL [Suspect]
     Indication: PARANOID PERSONALITY DISORDER
     Dosage: 1.5 MG QHS PO
     Route: 048
     Dates: start: 20090319, end: 20090402
  3. HALDOL 5 MG/ML [Suspect]
     Indication: BIPOLAR DISORDER
     Dosage: 5-10 UG/D ONE TIME IM, ONCE
     Route: 030
  4. HALDOL 5 MG/ML [Suspect]
     Indication: PARANOID PERSONALITY DISORDER
     Dosage: 5-10 UG/D ONE TIME IM, ONCE
     Route: 030
  5. TYLENOL (CAPLET) [Concomitant]
  6. PAROLDEL [Concomitant]
  7. KLONOPIN [Concomitant]
  8. LOVENOX [Concomitant]
  9. ATIVAN [Concomitant]
  10. TRILEPTAL [Concomitant]
  11. SEROQUEL [Concomitant]
  12. ZOLOFT [Concomitant]
  13. AMBIEN [Concomitant]

REACTIONS (1)
  - CATATONIA [None]
